FAERS Safety Report 12448552 (Version 2)
Quarter: 2016Q3

REPORT INFORMATION
  Report Type: Spontaneous
  Country: US (occurrence: US)
  Receive Date: 20160608
  Receipt Date: 20160721
  Transmission Date: 20161109
  Serious: Yes (Other)
  Sender: FDA-Public Use
  Company Number: US-JNJFOC-20160600298

PATIENT
  Age: 77 Year
  Sex: Female
  Weight: 50.8 kg

DRUGS (1)
  1. HALDOL [Suspect]
     Active Substance: HALOPERIDOL
     Indication: DISTURBANCE IN SOCIAL BEHAVIOUR
     Route: 042
     Dates: start: 201605, end: 20160530

REACTIONS (10)
  - Incorrect route of drug administration [Unknown]
  - Asthenia [Unknown]
  - Dyspnoea [Not Recovered/Not Resolved]
  - Pyrexia [Unknown]
  - Muscle twitching [Unknown]
  - Off label use [Unknown]
  - Hypotension [Unknown]
  - Renal impairment [Not Recovered/Not Resolved]
  - Abnormal behaviour [Not Recovered/Not Resolved]
  - Hallucination, visual [Not Recovered/Not Resolved]

NARRATIVE: CASE EVENT DATE: 201605
